FAERS Safety Report 19164916 (Version 3)
Quarter: 2021Q3

REPORT INFORMATION
  Report Type: Spontaneous
  Country: AT (occurrence: AT)
  Receive Date: 20210421
  Receipt Date: 20210818
  Transmission Date: 20211014
  Serious: Yes (Hospitalization)
  Sender: FDA-Public Use
  Company Number: AT-EISAI MEDICAL RESEARCH-EC-2021-089595

PATIENT
  Age: 20 Year
  Sex: Female
  Weight: 55 kg

DRUGS (3)
  1. LAMOTRIGINE. [Concomitant]
     Active Substance: LAMOTRIGINE
     Indication: EPILEPSY
     Route: 048
     Dates: start: 2018, end: 2021
  2. FYCOMPA [Suspect]
     Active Substance: PERAMPANEL
     Indication: EPILEPSY
     Route: 048
     Dates: start: 2019, end: 202102
  3. FYCOMPA [Suspect]
     Active Substance: PERAMPANEL
     Dosage: OVERDOSE (4 MG, TWICE/DAY OR MORE)
     Route: 048
     Dates: start: 202102, end: 20210306

REACTIONS (3)
  - Aggression [Recovered/Resolved]
  - Fatigue [Recovered/Resolved]
  - Accidental overdose [Recovered/Resolved]

NARRATIVE: CASE EVENT DATE: 2021
